FAERS Safety Report 23571732 (Version 1)
Quarter: 2024Q1

REPORT INFORMATION
  Report Type: Spontaneous
  Country: US (occurrence: None)
  Receive Date: 20240212
  Receipt Date: 20240212
  Transmission Date: 20240410
  Serious: Yes (Other)
  Sender: FDA-Public Use
  Company Number: None

PATIENT
  Age: 59 Year
  Sex: Female
  Weight: 57.61 kg

DRUGS (10)
  1. TRAMADOL [Suspect]
     Active Substance: TRAMADOL\TRAMADOL HYDROCHLORIDE
  2. CYCLOBENZAR [Concomitant]
  3. CLONAZEPAM [Concomitant]
     Active Substance: CLONAZEPAM
  4. ALPRAZALAM [Concomitant]
  5. OXYCODONE [Concomitant]
     Active Substance: OXYCODONE\OXYCODONE HYDROCHLORIDE
  6. LAVENDAR HEMP SOAP [Concomitant]
  7. GRAPEFRUIT SEED EXTRACT [Concomitant]
     Active Substance: GRAPEFRUIT SEED EXTRACT
  8. CALCIUM ALGAE [Concomitant]
  9. LYSINE [Concomitant]
     Active Substance: LYSINE
  10. MAGNESIUM [Concomitant]

REACTIONS (2)
  - Constipation [None]
  - Victim of crime [None]
